FAERS Safety Report 9087888 (Version 1)
Quarter: 2013Q1

REPORT INFORMATION
  Report Type: Report from Study
  Country: US (occurrence: US)
  Receive Date: 20130201
  Receipt Date: 20130201
  Transmission Date: 20140127
  Serious: No
  Sender: FDA-Public Use
  Company Number: US-ABBOTT-12P-163-1024693-00

PATIENT
  Age: 75 None
  Sex: Female
  Weight: 63.56 kg

DRUGS (5)
  1. HUMIRA [Suspect]
     Indication: PSORIASIS
     Route: 058
     Dates: start: 20110517, end: 20110517
  2. HUMIRA [Suspect]
     Route: 058
     Dates: start: 20120524
  3. HUMIRA [Suspect]
     Route: 058
     Dates: start: 2012
  4. ANTIBIOTIC [Suspect]
     Indication: RESPIRATORY TRACT INFECTION
  5. TYLENOL [Concomitant]
     Indication: PAIN

REACTIONS (14)
  - Respiratory tract infection [Recovered/Resolved]
  - Decreased appetite [Not Recovered/Not Resolved]
  - Inappropriate schedule of drug administration [Unknown]
  - Injection site reaction [Recovered/Resolved]
  - Injection site pain [Recovered/Resolved]
  - Injection site swelling [Recovered/Resolved]
  - Injection site haemorrhage [Recovered/Resolved]
  - Injection site erythema [Recovered/Resolved]
  - Candida infection [Recovering/Resolving]
  - Insomnia [Not Recovered/Not Resolved]
  - Depression [Not Recovered/Not Resolved]
  - Weight decreased [Not Recovered/Not Resolved]
  - Psoriasis [Recovered/Resolved]
  - Pruritus [Recovered/Resolved]
